FAERS Safety Report 9308543 (Version 1)
Quarter: 2013Q2

REPORT INFORMATION
  Report Type: Report from Study
  Country: GB (occurrence: GB)
  Receive Date: 20130524
  Receipt Date: 20130524
  Transmission Date: 20140414
  Serious: Yes (Death)
  Sender: FDA-Public Use
  Company Number: GB-JNJFOC-20130508494

PATIENT
  Sex: Male
  Weight: 78 kg

DRUGS (4)
  1. STELARA [Suspect]
     Indication: PSORIASIS
     Route: 058
  2. LANSOPRAZOLE [Concomitant]
  3. SIMVASTATIN [Concomitant]
  4. VITAMIN B [Concomitant]

REACTIONS (1)
  - Alcoholic liver disease [Fatal]
